FAERS Safety Report 5317064-3 (Version None)
Quarter: 2007Q2

REPORT INFORMATION
  Report Type: 
  Country: None (occurrence: None)
  Receive Date: 20070504
  Receipt Date: 20070417
  Transmission Date: 20071010
  Serious: Yes (Hospitalization, Other)
  Sender: FDA-Public Use
  Company Number: US-PFIZER INC-2005056302

PATIENT
  Sex: Female
  Weight: 68 kg

DRUGS (6)
  1. BEXTRA [Suspect]
     Indication: ARTHRITIS
     Route: 048
  2. BEXTRA [Suspect]
     Indication: BONE PAIN
  3. BEXTRA [Suspect]
     Indication: OSTEOPOROSIS
  4. DYAZIDE [Concomitant]
  5. ACETYLSALICYLIC ACID SRT [Concomitant]
  6. VITAMINS [Concomitant]

REACTIONS (5)
  - CHEST PAIN [None]
  - FLUID RETENTION [None]
  - MYOCARDIAL INFARCTION [None]
  - RASH PAPULAR [None]
  - SKIN IRRITATION [None]
